FAERS Safety Report 6117906-8 (Version None)
Quarter: 2009Q1

REPORT INFORMATION
  Report Type: 
  Country: None (occurrence: None)
  Receive Date: 20090314
  Receipt Date: 20090202
  Transmission Date: 20090719
  Serious: No
  Sender: FDA-Public Use
  Company Number: US-ABBOTT-09P-163-0501327-00

PATIENT
  Sex: Female
  Weight: 77.634 kg

DRUGS (7)
  1. HUMIRA [Suspect]
     Indication: RHEUMATOID ARTHRITIS
     Route: 058
     Dates: start: 20050615, end: 20080101
  2. HUMIRA [Suspect]
     Indication: RHEUMATOID ARTHRITIS
     Dates: start: 20080101
  3. CARDIZEM [Concomitant]
     Indication: HYPERTENSION
     Route: 048
  4. THYROID TAB [Concomitant]
     Indication: HYPOTHYROIDISM
     Route: 048
  5. ASPIRIN [Concomitant]
     Indication: CARDIOVASCULAR EVENT PROPHYLAXIS
     Route: 048
  6. COZAAR [Concomitant]
     Indication: HYPERTENSION
     Route: 048
  7. BETAPACE [Concomitant]
     Indication: HYPERTENSION
     Route: 048

REACTIONS (1)
  - INJECTION SITE IRRITATION [None]
